FAERS Safety Report 23467366 (Version 1)
Quarter: 2024Q1

REPORT INFORMATION
  Report Type: Spontaneous
  Country: US (occurrence: None)
  Receive Date: 20240131
  Receipt Date: 20240131
  Transmission Date: 20240410
  Serious: Yes (Disabling)
  Sender: FDA-Public Use
  Company Number: None

PATIENT
  Age: 26 Year
  Sex: Female
  Weight: 75.75 kg

DRUGS (3)
  1. LILETTA [Suspect]
     Active Substance: LEVONORGESTREL
  2. METOPROLOL [Concomitant]
     Active Substance: METOPROLOL
  3. Daily vitamin [Concomitant]

REACTIONS (10)
  - Dizziness [None]
  - Pain [None]
  - Paralysis [None]
  - Paraesthesia [None]
  - Food intolerance [None]
  - Neurogenic shock [None]
  - Brain fog [None]
  - Migraine [None]
  - Movement disorder [None]
  - Complication associated with device [None]

NARRATIVE: CASE EVENT DATE: 20170401
